FAERS Safety Report 7905211-6 (Version None)
Quarter: 2011Q4

REPORT INFORMATION
  Report Type: 
  Country: None (occurrence: None)
  Receive Date: 20111109
  Receipt Date: 20111027
  Transmission Date: 20120403
  Serious: Yes (Life-Threatening, Hospitalization, Other)
  Sender: FDA-Public Use
  Company Number: FR-ELI_LILLY_AND_COMPANY-FR201110006359

PATIENT
  Age: 48 Year
  Sex: Male

DRUGS (5)
  1. TEGRETOL [Concomitant]
     Indication: EPILEPSY
     Dosage: UNK
     Dates: start: 20110801, end: 20110901
  2. URBANYL [Concomitant]
     Indication: EPILEPSY
  3. CHLORPROMAZINE HCL [Concomitant]
     Indication: DEPRESSION
  4. EFFEXOR [Concomitant]
     Indication: DEPRESSION
  5. CYMBALTA [Suspect]
     Indication: DEPRESSION
     Dosage: UNK, UNKNOWN
     Route: 048
     Dates: start: 20110801, end: 20110901

REACTIONS (1)
  - TOXIC EPIDERMAL NECROLYSIS [None]
